FAERS Safety Report 7945160-0 (Version None)
Quarter: 2011Q4

REPORT INFORMATION
  Report Type: 
  Country: None (occurrence: None)
  Receive Date: 20111129
  Receipt Date: 20111115
  Transmission Date: 20120403
  Serious: Yes (Hospitalization, Other)
  Sender: FDA-Public Use
  Company Number: FR-NOVOPROD-339239

PATIENT

DRUGS (4)
  1. ATENOLOL [Concomitant]
     Indication: GLAUCOMA
     Dosage: 50 MG, QD
     Route: 048
  2. VICTOZA [Suspect]
     Indication: PRODUCT USED FOR UNKNOWN INDICATION
     Dosage: 1.8 MG, UNK
     Route: 058
  3. REPAGLINIDE [Concomitant]
  4. METFORMIN HYDROCHLORIDE [Concomitant]

REACTIONS (1)
  - METASTATIC NEOPLASM [None]
